FAERS Safety Report 4750943-4 (Version None)
Quarter: 2005Q3

REPORT INFORMATION
  Report Type: 
  Country: None (occurrence: None)
  Receive Date: 20050822
  Receipt Date: 20050810
  Transmission Date: 20060218
  Serious: Yes (Other)
  Sender: FDA-Public Use
  Company Number: 2005092465

PATIENT
  Age: 18 Year
  Sex: Female
  Weight: 66.2252 kg

DRUGS (1)
  1. COOL MINT LISTERINE (MENTHOL, METHYL SALICYLATE, EUCALYPTOL, THYMOL) [Suspect]
     Dates: start: 20050509, end: 20050509

REACTIONS (7)
  - CHEMICAL EYE INJURY [None]
  - CORNEAL ABRASION [None]
  - ERYTHEMA OF EYELID [None]
  - EYE PRURITUS [None]
  - INCORRECT ROUTE OF DRUG ADMINISTRATION [None]
  - MYDRIASIS [None]
  - VISUAL ACUITY REDUCED [None]
